FAERS Safety Report 11729742 (Version 3)
Quarter: 2017Q1

REPORT INFORMATION
  Report Type: Spontaneous
  Country: US (occurrence: US)
  Receive Date: 20151112
  Receipt Date: 20170317
  Transmission Date: 20170428
  Serious: Yes (Hospitalization)
  Sender: FDA-Public Use
  Company Number: US-PFIZER INC-2015382963

PATIENT
  Age: 59 Year
  Sex: Female
  Weight: 98.4 kg

DRUGS (3)
  1. REVATIO [Suspect]
     Active Substance: SILDENAFIL CITRATE
     Indication: CATHETERISATION CARDIAC
     Dosage: 20 MG, 3X/DAY
     Dates: start: 201509, end: 2015
  2. REVATIO [Suspect]
     Active Substance: SILDENAFIL CITRATE
     Indication: PULMONARY HYPERTENSION
     Dosage: 40 MG, 3X/DAY (TWO 20 MG TABLETS THREE TIMES A DAY)
     Dates: start: 2015
  3. REVATIO [Suspect]
     Active Substance: SILDENAFIL CITRATE
     Indication: CARDIAC DISORDER
     Dosage: UNK

REACTIONS (6)
  - Condition aggravated [Unknown]
  - Pulmonary hypertension [Unknown]
  - Fluid retention [Unknown]
  - Asthma [Unknown]
  - Product use issue [Unknown]
  - Cardiac failure congestive [Unknown]

NARRATIVE: CASE EVENT DATE: 2015
